FAERS Safety Report 8811073 (Version 1)
Quarter: 2012Q4

REPORT INFORMATION
  Report Type: Spontaneous
  Country: US (occurrence: None)
  Receive Date: 20120924
  Receipt Date: 20120924
  Transmission Date: 20130627
  Serious: Yes (Hospitalization, Other)
  Sender: FDA-Public Use
  Company Number: ADR-2012-01724

PATIENT
  Age: 65 Year
  Sex: Female

DRUGS (4)
  1. BACLOFEN INTRATHECAL [Suspect]
     Indication: SPINAL PAIN
  2. FENTANYL [Concomitant]
  3. DILAUDID [Concomitant]
  4. CLONIDINE [Concomitant]

REACTIONS (10)
  - Infusion site extravasation [None]
  - Feeling abnormal [None]
  - Asthenia [None]
  - Confusional state [None]
  - Oxygen saturation decreased [None]
  - Somnolence [None]
  - Overdose [None]
  - Pain [None]
  - Feeling hot [None]
  - Dissociation [None]
